FAERS Safety Report 13898716 (Version 2)
Quarter: 2017Q4

REPORT INFORMATION
  Report Type: Report from Study
  Country: US (occurrence: US)
  Receive Date: 20170823
  Receipt Date: 20171107
  Transmission Date: 20180320
  Serious: Yes (Other)
  Sender: FDA-Public Use
  Company Number: US-EXELIXIS-CABO-17009359

PATIENT
  Sex: Male

DRUGS (23)
  1. TEMOZOLOMIDE. [Concomitant]
     Active Substance: TEMOZOLOMIDE
  2. ACETAMINOPHEN. [Concomitant]
     Active Substance: ACETAMINOPHEN
  3. CAPECITABINE. [Concomitant]
     Active Substance: CAPECITABINE
  4. SANDOSTATIN [Concomitant]
     Active Substance: OCTREOTIDE ACETATE
  5. OXYCODONE [Concomitant]
     Active Substance: OXYCODONE
  6. ELIQUIS [Concomitant]
     Active Substance: APIXABAN
  7. COMETRIQ [Suspect]
     Active Substance: CABOZANTINIB S-MALATE
     Indication: NEUROENDOCRINE TUMOUR
     Dosage: 60 MG, QD
     Route: 048
     Dates: start: 20170407, end: 201706
  8. COMETRIQ [Suspect]
     Active Substance: CABOZANTINIB S-MALATE
     Dosage: 60 MG, QD
     Route: 048
     Dates: start: 2017, end: 20170927
  9. MEGESTROL [Concomitant]
     Active Substance: MEGESTROL
  10. ONDANSETRON [Concomitant]
     Active Substance: ONDANSETRON
  11. ASPIRIN. [Concomitant]
     Active Substance: ASPIRIN
  12. COQ10 [Concomitant]
     Active Substance: UBIDECARENONE
  13. FENOFIBRATE. [Concomitant]
     Active Substance: FENOFIBRATE
  14. ISOSORBIDE MONONITRATE. [Concomitant]
     Active Substance: ISOSORBIDE MONONITRATE
  15. METOPROLOL. [Concomitant]
     Active Substance: METOPROLOL
  16. MULTIVITAMIN [Concomitant]
     Active Substance: VITAMINS
  17. SIMVASTATIN. [Concomitant]
     Active Substance: SIMVASTATIN
  18. APIXABAN [Concomitant]
     Active Substance: APIXABAN
  19. COENZYME [Concomitant]
     Active Substance: UBIDECARENONE
  20. DILTIAZEM. [Concomitant]
     Active Substance: DILTIAZEM
  21. DOCUSATE [Concomitant]
     Active Substance: DOCUSATE
  22. PANTOPRAZOLE [Concomitant]
     Active Substance: PANTOPRAZOLE
  23. SENNA [Concomitant]
     Active Substance: SENNA LEAF\SENNOSIDES\SENNOSIDES A AND B

REACTIONS (7)
  - Skin exfoliation [Unknown]
  - Decreased appetite [Unknown]
  - Off label use [Unknown]
  - Cerebral haematoma [Recovering/Resolving]
  - Tongue disorder [Recovering/Resolving]
  - Skin fissures [Unknown]
  - Constipation [Unknown]
